FAERS Safety Report 17956441 (Version 1)
Quarter: 2020Q3

REPORT INFORMATION
  Report Type: Spontaneous
  Country: AU (occurrence: AU)
  Receive Date: 20200629
  Receipt Date: 20200629
  Transmission Date: 20201104
  Serious: Yes (Other)
  Sender: FDA-Public Use
  Company Number: AU-ROCHE-2631526

PATIENT
  Age: 77 Year
  Sex: Female

DRUGS (2)
  1. ALECTINIB. [Suspect]
     Active Substance: ALECTINIB
     Indication: NON-SMALL CELL LUNG CANCER METASTATIC
     Route: 065
  2. ALECTINIB. [Suspect]
     Active Substance: ALECTINIB
     Route: 065

REACTIONS (2)
  - Anisocytosis [Unknown]
  - Haemolysis [Unknown]
